FAERS Safety Report 8880107 (Version 2)
Quarter: 2014Q2

REPORT INFORMATION
  Report Type: Spontaneous
  Country: LK (occurrence: LK)
  Receive Date: 20121031
  Receipt Date: 20131018
  Transmission Date: 20141212
  Serious: Yes (Other)
  Sender: FDA-Public Use
  Company Number: LK-PFIZER INC-2012272643

PATIENT
  Age: 12 Year
  Sex: Male

DRUGS (2)
  1. RISPERIDONE [Suspect]
     Indication: TOURETTE^S DISORDER
     Dosage: 6 MG/DAY
  2. HALOPERIDOL [Suspect]
     Indication: TOURETTE^S DISORDER
     Dosage: 15 MG/DAY

REACTIONS (9)
  - Overdose [Unknown]
  - Attention deficit/hyperactivity disorder [Unknown]
  - Developmental delay [Unknown]
  - Hyperphagia [Unknown]
  - Weight increased [Unknown]
  - Obsessive thoughts [Unknown]
  - Compulsions [Unknown]
  - Drug resistance [Unknown]
  - Drug ineffective [Unknown]
